FAERS Safety Report 9659657 (Version 4)
Quarter: 2014Q1

REPORT INFORMATION
  Report Type: Report from Study
  Country: FR (occurrence: FR)
  Receive Date: 20131031
  Receipt Date: 20140226
  Transmission Date: 20141002
  Serious: Yes (Hospitalization, Other)
  Sender: FDA-Public Use
  Company Number: FR-ALEXION PHARMACEUTICALS INC.-A201302905

PATIENT
  Age: 33 Year
  Sex: Male

DRUGS (15)
  1. ECULIZUMAB [Suspect]
     Indication: HAEMOLYTIC URAEMIC SYNDROME
     Dosage: 1200 MG, UNK
     Route: 042
     Dates: start: 20110806
  2. ADVAGRAF [Concomitant]
     Dosage: 18 MG, UNK
  3. ADVAGRAF [Concomitant]
     Dosage: 5 MG EXTENDED RELEASE CAPSULE 3 IN THE MORNING
  4. CELLCEPT [Concomitant]
     Dosage: 500 MG, BID TABLET
  5. DI-HYDAN [Concomitant]
     Dosage: 100 MG TABLETS, 3 IN THE EVENING
  6. GARDENAL [Concomitant]
     Dosage: 150 MG, UNK
  7. PANTOPRAZOLE [Concomitant]
     Dosage: 40 MG, BID
  8. ORACILLIN [Concomitant]
     Dosage: 1 UNK, UNK
  9. RENITEC [Concomitant]
     Dosage: 5 MG UNK
  10. TRAMADOL [Concomitant]
     Dosage: 300 MG VIA SYRINGE PUMP
     Route: 042
  11. SPASFON [Concomitant]
     Dosage: 240 MG VIA SYRINGE PUMP
     Route: 042
  12. CALCIPARINE [Concomitant]
     Dosage: 0.2 X 2
  13. CARDENSIEL [Concomitant]
     Dosage: 2.5 MG, QD
  14. LANTUS [Concomitant]
     Dosage: UNK
  15. HUMALOG [Suspect]
     Dosage: UNK

REACTIONS (8)
  - Cholecystitis [Recovered/Resolved]
  - Shock haemorrhagic [Not Recovered/Not Resolved]
  - Lung disorder [Not Recovered/Not Resolved]
  - Liver abscess [Not Recovered/Not Resolved]
  - Haematemesis [Recovered/Resolved]
  - Melaena [Recovered/Resolved]
  - Sepsis [Not Recovered/Not Resolved]
  - Anaemia [Not Recovered/Not Resolved]
